FAERS Safety Report 17983201 (Version 1)
Quarter: 2020Q3

REPORT INFORMATION
  Report Type: Spontaneous
  Country: NZ (occurrence: NZ)
  Receive Date: 20200706
  Receipt Date: 20200706
  Transmission Date: 20201103
  Serious: Yes (Hospitalization)
  Sender: FDA-Public Use
  Company Number: NZ-ELI_LILLY_AND_COMPANY-NZ202006011874

PATIENT
  Age: 19 Year
  Sex: Male

DRUGS (5)
  1. HABITROL [Suspect]
     Active Substance: NICOTINE
     Indication: NICOTINE DEPENDENCE
     Dosage: 16 MG, DAILY
     Route: 048
     Dates: start: 20191106
  2. LORAZEPAM. [Suspect]
     Active Substance: LORAZEPAM
     Indication: AGITATION
  3. SALBUTAMOL [Suspect]
     Active Substance: ALBUTEROL
     Indication: ASTHMA
     Dosage: 100 UG, PRN
     Route: 055
     Dates: start: 20191106
  4. LORAZEPAM. [Suspect]
     Active Substance: LORAZEPAM
     Indication: RESTLESSNESS
     Dosage: 2 MG, PRN
     Route: 048
     Dates: start: 20191106
  5. OLANZAPINE 15MG [Suspect]
     Active Substance: OLANZAPINE
     Indication: PSYCHOTIC DISORDER
     Dosage: 15 MG, DAILY
     Route: 048
     Dates: start: 20191021, end: 20191120

REACTIONS (2)
  - Abdominal pain [Recovering/Resolving]
  - Hepatic function abnormal [Recovering/Resolving]

NARRATIVE: CASE EVENT DATE: 20191107
